FAERS Safety Report 8159847-0 (Version None)
Quarter: 2012Q1

REPORT INFORMATION
  Report Type: 
  Country: None (occurrence: None)
  Receive Date: 20120223
  Receipt Date: 20120215
  Transmission Date: 20120608
  Serious: Yes (Other)
  Sender: FDA-Public Use
  Company Number: US-BAYER-2012-015658

PATIENT
  Age: 63 Year
  Sex: Female

DRUGS (2)
  1. CLIMARA [Suspect]
     Dosage: UNK
     Route: 062
     Dates: start: 19970101
  2. CLIMARA [Suspect]
     Dosage: UNK

REACTIONS (2)
  - APPLICATION SITE ULCER [None]
  - HOT FLUSH [None]
